FAERS Safety Report 8518623-7 (Version None)
Quarter: 2012Q3

REPORT INFORMATION
  Report Type: 
  Country: None (occurrence: None)
  Receive Date: 20120718
  Receipt Date: 20110617
  Transmission Date: 20120928
  Serious: Yes (Hospitalization)
  Sender: FDA-Public Use
  Company Number: US-BRISTOL-MYERS SQUIBB COMPANY-15781545

PATIENT
  Age: 51 Year
  Sex: Female
  Weight: 64 kg

DRUGS (3)
  1. COUMADIN [Suspect]
     Indication: HEPATIC VEIN THROMBOSIS
     Dosage: APPROXIMATELY 16 YEARS AGO ,RESTARTED MAY11
     Route: 048
  2. CRESTOR [Concomitant]
  3. TYLENOL [Concomitant]

REACTIONS (5)
  - CONTUSION [None]
  - SWELLING [None]
  - BLOOD URINE PRESENT [None]
  - PAIN IN EXTREMITY [None]
  - INTERNATIONAL NORMALISED RATIO INCREASED [None]
